FAERS Safety Report 8852238 (Version 2)
Quarter: 2012Q4

REPORT INFORMATION
  Report Type: 
  Country: US (occurrence: US)
  Receive Date: 20121022
  Receipt Date: 20121226
  Transmission Date: 20130627
  Serious: No
  Sender: FDA-Public Use
  Company Number: US-009507513-1208USA000474

PATIENT
  Age: 56 Year
  Sex: Female

DRUGS (1)
  1. PROVENTIL [Suspect]
     Dosage: UNK, prn
     Route: 055
     Dates: start: 20120713

REACTIONS (3)
  - Wheezing [Recovering/Resolving]
  - Product quality issue [Unknown]
  - Underdose [Unknown]
